FAERS Safety Report 8539915-1 (Version None)
Quarter: 2012Q3

REPORT INFORMATION
  Report Type: 
  Country: None (occurrence: None)
  Receive Date: 20120726
  Receipt Date: 20120711
  Transmission Date: 20120928
  Serious: Yes (Disabling)
  Sender: FDA-Public Use
  Company Number: GB-WATSON-2012-12522

PATIENT
  Age: 75 Year
  Sex: Female
  Weight: 110 kg

DRUGS (5)
  1. L-THYROXINE                        /00068001/ [Concomitant]
     Indication: HYPOTHYROIDISM
     Dosage: 75 MCG, DAILY
     Route: 048
     Dates: start: 20040101
  2. SULPIRIDE [Concomitant]
     Indication: SCHIZOPHRENIA
     Dosage: 200 MG, DAILY
     Route: 048
     Dates: start: 20040101
  3. LEVETIRACETAM [Suspect]
     Indication: EPILEPSY
     Dosage: 1.5 MG, BID
     Route: 048
     Dates: start: 20120101, end: 20120501
  4. CARBAMAZEPINE [Suspect]
     Indication: EPILEPSY
     Dosage: 200 MG, BID
     Route: 048
     Dates: start: 20050101
  5. SIMVASTATIN [Concomitant]
     Indication: CEREBRAL SMALL VESSEL ISCHAEMIC DISEASE
     Dosage: INDICATION: SMALL VESSEL DISEASE
     Route: 048
     Dates: start: 20110101

REACTIONS (2)
  - FATIGUE [None]
  - DRUG INTERACTION [None]
